FAERS Safety Report 16131419 (Version 2)
Quarter: 2019Q2

REPORT INFORMATION
  Report Type: Report from Study
  Country: None (occurrence: GR)
  Receive Date: 20190328
  Receipt Date: 20190417
  Transmission Date: 20190711
  Serious: Yes (Other)
  Sender: FDA-Public Use
  Company Number: GR-ABBVIE-19S-066-2718706-00

PATIENT
  Age: 79 Year
  Sex: Male

DRUGS (5)
  1. GUTRON [Concomitant]
     Active Substance: MIDODRINE
     Indication: ORTHOSTATIC HYPOTENSION
     Route: 048
     Dates: start: 20170801
  2. DUODOPA [Suspect]
     Active Substance: CARBIDOPA\LEVODOPA
     Indication: PARKINSON^S DISEASE
     Dosage: MD:8.0ML; CR:2.6ML/H; ED:1.4ML
     Route: 050
     Dates: start: 20170213
  3. FILICINE [Concomitant]
     Indication: PRODUCT USED FOR UNKNOWN INDICATION
     Route: 048
  4. NEXIUM [Concomitant]
     Active Substance: ESOMEPRAZOLE MAGNESIUM
     Indication: PRODUCT USED FOR UNKNOWN INDICATION
     Route: 048
  5. ARTICLOX [Concomitant]
     Indication: VITAMIN B12 DEFICIENCY
     Dosage: 1MG/2ML
     Route: 050
     Dates: start: 201612

REACTIONS (7)
  - Food refusal [Recovered/Resolved]
  - Blood folate increased [Unknown]
  - Delirium [Not Recovered/Not Resolved]
  - Fall [Unknown]
  - Head injury [Recovered/Resolved]
  - Craniocerebral injury [Recovered/Resolved]
  - Depressed mood [Not Recovered/Not Resolved]

NARRATIVE: CASE EVENT DATE: 201903
